FAERS Safety Report 8906517 (Version 1)
Quarter: 2012Q4

REPORT INFORMATION
  Report Type: Spontaneous
  Country: IL (occurrence: None)
  Receive Date: 20121108
  Receipt Date: 20121108
  Transmission Date: 20130627
  Serious: Yes (Other)
  Sender: FDA-Public Use
  Company Number: AXC-2012-000489

PATIENT
  Age: 16 Year
  Sex: Male

DRUGS (2)
  1. URSODEOXYCHOLATE SODIUM [Suspect]
     Indication: CHRONIC LIVER DISEASE
     Route: 048
  2. ASACOL (MESALAZINE) [Concomitant]

REACTIONS (1)
  - Muscle neoplasm [None]
